FAERS Safety Report 24390526 (Version 1)
Quarter: 2024Q4

REPORT INFORMATION
  Report Type: Spontaneous
  Country: DE (occurrence: DE)
  Receive Date: 20241003
  Receipt Date: 20241003
  Transmission Date: 20250115
  Serious: Yes (Other)
  Sender: ROCHE
  Company Number: DE-ROCHE-10000073954

PATIENT
  Sex: Male
  Weight: 90 kg

DRUGS (1)
  1. OCREVUS [Suspect]
     Active Substance: OCRELIZUMAB
     Indication: Primary progressive multiple sclerosis
     Dosage: OCREVUS 920 MG INJECTION SOLUTION
     Route: 065
     Dates: start: 20240201, end: 20240215

REACTIONS (7)
  - Off label use [Unknown]
  - Blindness [Unknown]
  - Eye pain [Unknown]
  - Psychiatric symptom [Unknown]
  - Psychotic behaviour [Unknown]
  - Mania [Unknown]
  - Confusional state [Unknown]

NARRATIVE: CASE EVENT DATE: 20240301
